FAERS Safety Report 12668938 (Version 1)
Quarter: 2016Q3

REPORT INFORMATION
  Report Type: Report from Study
  Country: US (occurrence: US)
  Receive Date: 20160819
  Receipt Date: 20160819
  Transmission Date: 20161109
  Serious: Yes (Other)
  Sender: FDA-Public Use
  Company Number: US-ASTELLAS-2016US032051

PATIENT
  Age: 59 Year
  Sex: Female

DRUGS (3)
  1. GEMCITABINE [Suspect]
     Active Substance: GEMCITABINE\GEMCITABINE HYDROCHLORIDE
     Indication: ADRENAL GLAND CANCER
     Dosage: 1000 MG/M2, OVER 30 MIN ON DAYS 1, 8, 15
     Route: 042
     Dates: start: 20100325
  2. ERLOTINIB [Suspect]
     Active Substance: ERLOTINIB
     Indication: ADRENAL GLAND CANCER
     Route: 048
     Dates: start: 20100325
  3. VISMODEGIB [Suspect]
     Active Substance: VISMODEGIB
     Indication: ADRENAL GLAND CANCER
     Route: 048
     Dates: start: 20100325

REACTIONS (2)
  - Retinal vein occlusion [Recovered/Resolved]
  - Ocular vascular disorder [Unknown]

NARRATIVE: CASE EVENT DATE: 20100326
